FAERS Safety Report 18569134 (Version 1)
Quarter: 2020Q4

REPORT INFORMATION
  Report Type: Spontaneous
  Country: US (occurrence: US)
  Receive Date: 20201202
  Receipt Date: 20201202
  Transmission Date: 20210114
  Serious: No
  Sender: FDA-Public Use
  Company Number: US-MYLANLABS-2020M1097162

PATIENT
  Sex: Female
  Weight: 122 kg

DRUGS (1)
  1. NITROGLYCERIN TRANSDERMAL DELIVERY SYSTEM [Suspect]
     Active Substance: NITROGLYCERIN
     Indication: ANGINA PECTORIS
     Dosage: ONE PATCH AT NIGHT AND TAKE OFF IN THE MORNING
     Route: 062

REACTIONS (5)
  - Product quality issue [Unknown]
  - Product adhesion issue [Unknown]
  - Application site pain [Recovering/Resolving]
  - Application site haemorrhage [Recovering/Resolving]
  - Application site bruise [Not Recovered/Not Resolved]
